FAERS Safety Report 7323855-X (Version None)
Quarter: 2011Q1

REPORT INFORMATION
  Report Type: 
  Country: None (occurrence: None)
  Receive Date: 20110301
  Receipt Date: 20110223
  Transmission Date: 20110831
  Serious: Yes (Other)
  Sender: FDA-Public Use
  Company Number: A0915073A

PATIENT
  Age: 33 Year
  Sex: Female

DRUGS (8)
  1. FIORICET [Concomitant]
  2. IBUPROFEN [Suspect]
  3. IMITREX [Suspect]
     Indication: MIGRAINE
     Dosage: 100MG TWICE PER DAY
     Route: 048
  4. MECLIZINE [Concomitant]
  5. CAFFEINE [Concomitant]
  6. PHENERGAN [Concomitant]
  7. PERCOCET [Concomitant]
  8. NUVARING [Concomitant]

REACTIONS (6)
  - DRUG ADMINISTRATION ERROR [None]
  - TRANSIENT ISCHAEMIC ATTACK [None]
  - VERTIGO [None]
  - BLOOD CAFFEINE INCREASED [None]
  - DYSARTHRIA [None]
  - SOMNOLENCE [None]
